FAERS Safety Report 17221928 (Version 3)
Quarter: 2020Q3

REPORT INFORMATION
  Report Type: Spontaneous
  Country: US (occurrence: US)
  Receive Date: 20200101
  Receipt Date: 20200707
  Transmission Date: 20201102
  Serious: Yes (Other)
  Sender: FDA-Public Use
  Company Number: US-ASTRAZENECA-2019SF91831

PATIENT
  Age: 13412 Day
  Sex: Female
  Weight: 93 kg

DRUGS (68)
  1. DIAZEPAM. [Concomitant]
     Active Substance: DIAZEPAM
  2. HYDROCODONE BITARTRATE. [Concomitant]
     Active Substance: HYDROCODONE BITARTRATE
  3. POTASSIUM CHLORIDE. [Concomitant]
     Active Substance: POTASSIUM CHLORIDE
  4. FLECTOR [Concomitant]
     Active Substance: DICLOFENAC EPOLAMINE
  5. LATUDA [Concomitant]
     Active Substance: LURASIDONE HYDROCHLORIDE
  6. METHYLPREDNISOLONE. [Concomitant]
     Active Substance: METHYLPREDNISOLONE
  7. LEVOCETIRIZINE DIHYDROCHLORIDE. [Concomitant]
     Active Substance: LEVOCETIRIZINE DIHYDROCHLORIDE
  8. SUMATRIPTAN SUCCINATE. [Concomitant]
     Active Substance: SUMATRIPTAN SUCCINATE
  9. NALOXONE [Concomitant]
     Active Substance: NALOXONE
  10. HYDROCODONE/ACETAMINOPHEN [Concomitant]
     Active Substance: ACETAMINOPHEN\HYDROCODONE
  11. PRAZOSIN HCL [Concomitant]
     Active Substance: PRAZOSIN HYDROCHLORIDE
  12. LORAZEPAM. [Concomitant]
     Active Substance: LORAZEPAM
  13. AMOXICILLIN TRIHYDRATE [Concomitant]
     Active Substance: AMOXICILLIN
  14. CHLORTHALIDONE. [Concomitant]
     Active Substance: CHLORTHALIDONE
  15. SIMETHICONE (DIMETHICONE) [Concomitant]
     Active Substance: DIMETHICONE
  16. ASCORBIC ACID. [Concomitant]
     Active Substance: ASCORBIC ACID
  17. AMOXICILLIN. [Concomitant]
     Active Substance: AMOXICILLIN
  18. DOXEPIN [Concomitant]
     Active Substance: DOXEPIN
  19. NEXIUM [Suspect]
     Active Substance: ESOMEPRAZOLE MAGNESIUM
     Indication: GASTRIC DISORDER
     Dosage: 40.0MG UNKNOWN
     Route: 048
     Dates: start: 2014, end: 2017
  20. METHOCARBAMOL. [Concomitant]
     Active Substance: METHOCARBAMOL
  21. METFORMIN HCL [Concomitant]
     Active Substance: METFORMIN HYDROCHLORIDE
  22. ZANTAC [Concomitant]
     Active Substance: RANITIDINE HYDROCHLORIDE
  23. TIZANIDINE. [Concomitant]
     Active Substance: TIZANIDINE
  24. AZITHROMYCIN ANHYDROUS. [Concomitant]
     Active Substance: AZITHROMYCIN ANHYDROUS
  25. MELOXICAM. [Concomitant]
     Active Substance: MELOXICAM
  26. POTASSIUM CITRATE. [Concomitant]
     Active Substance: POTASSIUM CITRATE
  27. ACETAMINOPHEN. [Concomitant]
     Active Substance: ACETAMINOPHEN
  28. POLYETHYLENE GLYCOL [Concomitant]
     Active Substance: POLYETHYLENE GLYCOLS
  29. ONDANSETRON HCL [Concomitant]
     Active Substance: ONDANSETRON HYDROCHLORIDE
  30. BUPROPION HCL [Concomitant]
     Active Substance: BUPROPION HYDROCHLORIDE
  31. DULOXETINE HCL [Concomitant]
     Active Substance: DULOXETINE HYDROCHLORIDE
  32. TRILEPTAL [Concomitant]
     Active Substance: OXCARBAZEPINE
  33. CHLORZOXAZONE. [Concomitant]
     Active Substance: CHLORZOXAZONE
  34. DOCUSATE SODIUM. [Concomitant]
     Active Substance: DOCUSATE SODIUM
  35. PSEUDOEPHEDRINE. [Concomitant]
     Active Substance: PSEUDOEPHEDRINE HYDROCHLORIDE
  36. ESCITALOPRAM OXALATE. [Concomitant]
     Active Substance: ESCITALOPRAM OXALATE
  37. TOPIRAMATE. [Concomitant]
     Active Substance: TOPIRAMATE
  38. VENLAFAXINE HYDROCHLORIDE. [Concomitant]
     Active Substance: VENLAFAXINE HYDROCHLORIDE
  39. ALLEGRA [Concomitant]
     Active Substance: FEXOFENADINE HYDROCHLORIDE
  40. VITAMIN D3 [Concomitant]
     Active Substance: CHOLECALCIFEROL
  41. FEXOFENADINE [Concomitant]
     Active Substance: FEXOFENADINE HYDROCHLORIDE
  42. SEROQUEL [Concomitant]
     Active Substance: QUETIAPINE FUMARATE
  43. CARISOPRODOL. [Concomitant]
     Active Substance: CARISOPRODOL
  44. PROPRANOLOL [Concomitant]
     Active Substance: PROPRANOLOL HYDROCHLORIDE
  45. PREVPAC [Concomitant]
     Active Substance: AMOXICILLIN\CLARITHROMYCIN\LANSOPRAZOLE
  46. SODIUM CHLORIDE. [Concomitant]
     Active Substance: SODIUM CHLORIDE
  47. OMEPRAZOLE. [Suspect]
     Active Substance: OMEPRAZOLE
     Indication: GASTRIC DISORDER
     Dosage: GENERIC20.0MG UNKNOWN
     Route: 065
     Dates: start: 2012, end: 2015
  48. PROTONIX [Suspect]
     Active Substance: PANTOPRAZOLE SODIUM
     Indication: GASTRIC DISORDER
     Dosage: GENERIC40.0MG UNKNOWN
     Route: 065
     Dates: start: 2010
  49. PROTONIX [Suspect]
     Active Substance: PANTOPRAZOLE SODIUM
     Indication: GASTRIC DISORDER
     Dosage: UNKNOWN
     Route: 065
  50. CODEINE PHOSPHATE [Concomitant]
     Active Substance: CODEINE PHOSPHATE
  51. BENZOYL PEROXIDE. [Concomitant]
     Active Substance: BENZOYL PEROXIDE
  52. FLUTICASONE PROPIONATE. [Concomitant]
     Active Substance: FLUTICASONE PROPIONATE
  53. FLUARIX NOS [Concomitant]
     Active Substance: INFLUENZA VIRUS VACCINE
  54. OXYCONTIN [Concomitant]
     Active Substance: OXYCODONE HYDROCHLORIDE
  55. FLUTICASONE. [Concomitant]
     Active Substance: FLUTICASONE
  56. LISINOPRIL. [Concomitant]
     Active Substance: LISINOPRIL
  57. PROTONIX [Suspect]
     Active Substance: PANTOPRAZOLE SODIUM
     Indication: GASTRIC DISORDER
     Dosage: 40.0MG UNKNOWN
     Route: 065
     Dates: start: 20101228
  58. ALPRAZOLAM. [Concomitant]
     Active Substance: ALPRAZOLAM
  59. ZOLPIDEM TARTRATE. [Concomitant]
     Active Substance: ZOLPIDEM TARTRATE
  60. IBUPROFEN. [Concomitant]
     Active Substance: IBUPROFEN
  61. GABAPENTIN. [Concomitant]
     Active Substance: GABAPENTIN
  62. NEXIUM [Suspect]
     Active Substance: ESOMEPRAZOLE MAGNESIUM
     Indication: GASTRIC DISORDER
     Dosage: 40.0MG UNKNOWN
     Route: 048
     Dates: start: 20160325
  63. OMEPRAZOLE. [Suspect]
     Active Substance: OMEPRAZOLE
     Indication: GASTRIC DISORDER
     Dosage: GENERIC20.0MG UNKNOWN
     Route: 065
     Dates: start: 20150127
  64. NITROFURANTOIN. [Concomitant]
     Active Substance: NITROFURANTOIN
  65. VYVANSE [Concomitant]
     Active Substance: LISDEXAMFETAMINE DIMESYLATE
  66. CHANTIX [Concomitant]
     Active Substance: VARENICLINE TARTRATE
  67. MAGNESIUM HYDROXIDE. [Concomitant]
     Active Substance: MAGNESIUM HYDROXIDE
  68. BUPRENORPHINE. [Concomitant]
     Active Substance: BUPRENORPHINE

REACTIONS (1)
  - Chronic kidney disease [Not Recovered/Not Resolved]

NARRATIVE: CASE EVENT DATE: 20170222
